FAERS Safety Report 23446237 (Version 2)
Quarter: 2024Q1

REPORT INFORMATION
  Report Type: Report from Study
  Country: BR (occurrence: BR)
  Receive Date: 20240126
  Receipt Date: 20240216
  Transmission Date: 20240409
  Serious: No
  Sender: FDA-Public Use
  Company Number: BR-TAKEDA-BR202001915

PATIENT
  Age: 30 Year
  Sex: Male
  Weight: 81 kg

DRUGS (14)
  1. HEMO-8R [Suspect]
     Active Substance: ANTIHEMOPHILIC FACTOR, HUMAN RECOMBINANT
     Indication: Factor VIII deficiency
     Dosage: UNK
     Route: 042
     Dates: start: 20160411
  2. AMOXILINA [Concomitant]
     Indication: Dental care
  3. BUTYLSCOPOLAMINE BROMIDE\METAMIZOLE SODIUM [Concomitant]
     Active Substance: BUTYLSCOPOLAMINE BROMIDE\METAMIZOLE SODIUM
     Indication: Toothache
  4. CELEBRA [Concomitant]
     Active Substance: CELECOXIB
     Indication: Osteitis
  5. DEXAMETHASONE [Concomitant]
     Active Substance: DEXAMETHASONE
     Indication: Dental care
  6. METAMIZOLE [Concomitant]
     Active Substance: METAMIZOLE
     Indication: Pain
  7. IBUPROFEN [Concomitant]
     Active Substance: IBUPROFEN
     Indication: Dental care
  8. IBUPROFEN [Concomitant]
     Active Substance: IBUPROFEN
     Indication: Pain
  9. IBUPROFEN [Concomitant]
     Active Substance: IBUPROFEN
     Indication: Toothache
  10. OMEPRAZOLE [Concomitant]
     Active Substance: OMEPRAZOLE
     Indication: Abdominal pain upper
  11. ACETAMINOPHEN [Concomitant]
     Active Substance: ACETAMINOPHEN
     Indication: Toothache
  12. RANITIDINE [Concomitant]
     Active Substance: RANITIDINE
     Indication: Dyspepsia
  13. TRANEXAMIC ACID [Concomitant]
     Active Substance: TRANEXAMIC ACID
     Indication: Dental care
  14. HYDROCORTISONE [Concomitant]
     Active Substance: HYDROCORTISONE
     Indication: Dyspnoea

REACTIONS (1)
  - Knee arthroplasty [Recovered/Resolved]

NARRATIVE: CASE EVENT DATE: 20200113
